FAERS Safety Report 11088406 (Version 2)
Quarter: 2015Q3

REPORT INFORMATION
  Report Type: Spontaneous
  Country: US (occurrence: US)
  Receive Date: 20150504
  Receipt Date: 20150724
  Transmission Date: 20151125
  Serious: No
  Sender: FDA-Public Use
  Company Number: US-PFIZER INC-2015148338

PATIENT
  Age: 73 Year
  Sex: Male
  Weight: 63.49 kg

DRUGS (3)
  1. LEVOTHYROXINE SODIUM. [Concomitant]
     Active Substance: LEVOTHYROXINE SODIUM
     Indication: THYROID DISORDER
     Dosage: 100 ?G, UNK
     Dates: start: 1990
  2. PREDNISONE. [Concomitant]
     Active Substance: PREDNISONE
     Dosage: 5 MG, UNK
     Dates: start: 1990
  3. TORISEL [Suspect]
     Active Substance: TEMSIROLIMUS
     Indication: RENAL CANCER
     Dosage: 1 DF, WEEKLY
     Route: 042
     Dates: start: 20150303, end: 20150421

REACTIONS (2)
  - Disease progression [Not Recovered/Not Resolved]
  - Renal cancer [Not Recovered/Not Resolved]

NARRATIVE: CASE EVENT DATE: 20150414
